FAERS Safety Report 8975285 (Version 1)
Quarter: 2012Q4

REPORT INFORMATION
  Report Type: 
  Country: FR (occurrence: FR)
  Receive Date: 20121219
  Receipt Date: 20121219
  Transmission Date: 20130627
  Serious: Yes (Hospitalization)
  Sender: FDA-Public Use
  Company Number: FR-PFIZER INC-2012319940

PATIENT
  Age: 74 Year
  Sex: Female

DRUGS (6)
  1. TRIATEC [Suspect]
     Indication: DRUG USE FOR UNKNOWN INDICATION
     Dosage: 2.5 mg, daily
     Route: 048
  2. AMLODIPINE [Concomitant]
     Dosage: UNK
  3. DOLIPRANE [Concomitant]
     Dosage: UNK
  4. INEXIUM [Concomitant]
     Dosage: UNK
  5. KARDEGIC [Concomitant]
     Dosage: UNK
  6. LUMIGAN [Concomitant]
     Dosage: UNK

REACTIONS (3)
  - Cerebrovascular accident [Unknown]
  - Hemiplegia [Unknown]
  - Cough [Unknown]
